FAERS Safety Report 4492048-6 (Version None)
Quarter: 2004Q4

REPORT INFORMATION
  Report Type: 
  Country: None (occurrence: None)
  Receive Date: 20041101
  Receipt Date: 20041021
  Transmission Date: 20050328
  Serious: Yes (Hospitalization)
  Sender: FDA-Public Use
  Company Number: GBWYE136325OCT04

PATIENT
  Age: 55 Year
  Sex: Male

DRUGS (7)
  1. EFFEXOR [Suspect]
     Indication: DEPRESSION
     Dosage: 150 MG, ORAL
     Route: 048
     Dates: end: 20040919
  2. MIRTAZAPINE [Suspect]
     Indication: DEPRESSION
     Dosage: ORAL
     Route: 048
     Dates: start: 20040807, end: 20040919
  3. OMEPRAZOLE [Concomitant]
  4. IRBESARTAN (IRBESARGAN) [Concomitant]
  5. ZOLDIPEN (ZOLDIPEM) [Concomitant]
  6. DIAZEPAM [Concomitant]
  7. ALFUZOSIN (ALFUZOSIN) [Concomitant]

REACTIONS (2)
  - INTESTINAL HYPOMOTILITY [None]
  - URINARY RETENTION [None]
